FAERS Safety Report 6636697-5 (Version None)
Quarter: 2010Q1

REPORT INFORMATION
  Report Type: 
  Country: None (occurrence: None)
  Receive Date: 20100316
  Receipt Date: 20100309
  Transmission Date: 20100710
  Serious: Yes (Disabling)
  Sender: FDA-Public Use
  Company Number: B0630360A

PATIENT
  Age: 40 Year
  Sex: Male
  Weight: 69 kg

DRUGS (1)
  1. BECOTIDE [Suspect]
     Indication: DRUG USE FOR UNKNOWN INDICATION
     Route: 055
     Dates: start: 20090101, end: 20090101

REACTIONS (4)
  - APHONIA [None]
  - DYSPHONIA [None]
  - LARYNGEAL OEDEMA [None]
  - VOCAL CORD PARALYSIS [None]
